FAERS Safety Report 8256441-8 (Version None)
Quarter: 2012Q2

REPORT INFORMATION
  Report Type: 
  Country: None (occurrence: None)
  Receive Date: 20120403
  Receipt Date: 20120330
  Transmission Date: 20120825
  Serious: Yes (Hospitalization, Other)
  Sender: FDA-Public Use
  Company Number: SK-AMGEN-SVKSP2011031475

PATIENT
  Age: 72 Year
  Sex: Female
  Weight: 55 kg

DRUGS (16)
  1. STATIN                             /00848101/ [Concomitant]
     Dosage: UNK
  2. OMEPRAZOLE [Concomitant]
     Dosage: 20 MG, BID
  3. PAMBA                              /00934201/ [Concomitant]
     Dosage: UNK UNK, PRN
  4. PROLIA [Suspect]
     Indication: OSTEOPOROSIS POSTMENOPAUSAL
     Dosage: 60 MG, Q6MO
     Dates: start: 20110615
  5. ALVESCO [Concomitant]
     Dosage: UNK UNK, BID
  6. SIMVASTATIN [Concomitant]
     Dosage: 10 MG, QD
  7. FRONTIN [Concomitant]
     Dosage: 0.25 MG, QD
  8. QUINOLONES [Concomitant]
  9. CORTICOSTEROIDS [Concomitant]
     Dosage: UNK
     Route: 055
  10. PAROXETINE HYDROCHLORIDE [Concomitant]
     Dosage: 10 MG, QD
  11. SPIRIVA [Concomitant]
     Dosage: UNK UNK, QD
  12. ZODAC [Concomitant]
     Dosage: UNK UNK, PRN
  13. TORVAZIN [Concomitant]
     Dosage: 20 MG, QD
  14. CREON [Concomitant]
     Dosage: 25000 IU, PRN
  15. HYPNOGEN [Concomitant]
     Dosage: UNK UNK, PRN
  16. TENSIOMIN [Concomitant]
     Dosage: 25 MG, PRN
     Route: 060

REACTIONS (9)
  - LIVER FUNCTION TEST ABNORMAL [None]
  - POLLAKIURIA [None]
  - COUGH [None]
  - MYALGIA [None]
  - CHILLS [None]
  - HAEMATURIA [None]
  - FATIGUE [None]
  - PYREXIA [None]
  - LUNG DISORDER [None]
